FAERS Safety Report 22245557 (Version 1)
Quarter: 2023Q2

REPORT INFORMATION
  Report Type: Spontaneous
  Country: US (occurrence: None)
  Receive Date: 20230421
  Receipt Date: 20230421
  Transmission Date: 20230721
  Serious: No
  Sender: FDA-Public Use
  Company Number: None

PATIENT
  Age: 69 Year
  Sex: Male
  Weight: 83.01 kg

DRUGS (16)
  1. CAPECITABINE [Suspect]
     Active Substance: CAPECITABINE
     Indication: Cholangiocarcinoma
     Dosage: 2000MG TWICE DAILY ORAL?
     Route: 048
     Dates: start: 202301, end: 20230414
  2. ACETAMINOPHEN [Concomitant]
     Active Substance: ACETAMINOPHEN
  3. AMLODIPINE [Concomitant]
     Active Substance: AMLODIPINE BESYLATE
  4. ASPIRIN [Concomitant]
     Active Substance: ASPIRIN
  5. CARVEDILOL [Concomitant]
     Active Substance: CARVEDILOL
  6. HUMALOG [Concomitant]
     Active Substance: INSULIN LISPRO
  7. HYDROCHLOROTHIAZIDE [Concomitant]
     Active Substance: HYDROCHLOROTHIAZIDE
  8. INSULIN LISPRO [Concomitant]
     Active Substance: INSULIN LISPRO
  9. METFORMIN [Concomitant]
     Active Substance: METFORMIN HYDROCHLORIDE
  10. VITAMINS [Concomitant]
     Active Substance: VITAMINS
  11. OZEMPIC [Concomitant]
     Active Substance: SEMAGLUTIDE
  12. SELENIUM [Concomitant]
  13. SIMVASTATIN [Concomitant]
     Active Substance: SIMVASTATIN
  14. SPIRONOLACTONE [Concomitant]
     Active Substance: SPIRONOLACTONE
  15. VALSARTAN [Concomitant]
     Active Substance: VALSARTAN
  16. VITAMIN D3 [Concomitant]
     Active Substance: CHOLECALCIFEROL

REACTIONS (3)
  - Therapy interrupted [None]
  - Endocrine disorder [None]
  - Localised infection [None]

NARRATIVE: CASE EVENT DATE: 20230414
